FAERS Safety Report 19353134 (Version 4)
Quarter: 2022Q2

REPORT INFORMATION
  Report Type: Spontaneous
  Country: US (occurrence: US)
  Receive Date: 20210531
  Receipt Date: 20220606
  Transmission Date: 20220721
  Serious: No
  Sender: FDA-Public Use
  Company Number: US-PFIZER INC-2021568145

PATIENT
  Age: 53 Year
  Sex: Female

DRUGS (6)
  1. IBRANCE [Suspect]
     Active Substance: PALBOCICLIB
     Indication: Breast cancer female
     Dosage: UNK
     Dates: start: 20191022
  2. IBRANCE [Suspect]
     Active Substance: PALBOCICLIB
     Dosage: UNK
     Dates: start: 20220601
  3. IBRANCE [Suspect]
     Active Substance: PALBOCICLIB
     Dosage: 125 MG
     Dates: start: 20200610
  4. IBRANCE [Suspect]
     Active Substance: PALBOCICLIB
     Dosage: 125 MG, 21 DAYS, FOLLOWED BY 7 DAYS OFF
     Route: 048
     Dates: start: 20200616
  5. IBRANCE [Suspect]
     Active Substance: PALBOCICLIB
     Dosage: 125 MG, TAKE 1 TABLET DAILY FOR 21DAYS THEN 7DAYS OFF
     Route: 048
     Dates: start: 20201215
  6. IBRANCE [Suspect]
     Active Substance: PALBOCICLIB
     Dosage: 125 MG, TAKE ONE TAB QD X 21 DAYS
     Route: 048
     Dates: start: 20211207

REACTIONS (9)
  - Dyspnoea [Unknown]
  - Neoplasm progression [Unknown]
  - Nausea [Not Recovered/Not Resolved]
  - Dry mouth [Unknown]
  - Dry skin [Unknown]
  - Dyspepsia [Unknown]
  - Nasopharyngitis [Unknown]
  - Product dose omission issue [Unknown]
  - Hot flush [Unknown]
